FAERS Safety Report 18543493 (Version 1)
Quarter: 2020Q4

REPORT INFORMATION
  Report Type: Spontaneous
  Country: JP (occurrence: JP)
  Receive Date: 20201124
  Receipt Date: 20201124
  Transmission Date: 20210114
  Serious: Yes (Other)
  Sender: FDA-Public Use
  Company Number: JP-SA-2020SA285943

PATIENT

DRUGS (5)
  1. BILANOA [Concomitant]
     Active Substance: BILASTINE
     Indication: DERMATITIS ATOPIC
     Dosage: 20 MG, QD
     Route: 048
  2. BILANOA [Concomitant]
     Active Substance: BILASTINE
     Indication: ANAPHYLACTIC REACTION
  3. DUPIXENT [Suspect]
     Active Substance: DUPILUMAB
     Indication: DERMATITIS ATOPIC
     Dosage: 600 MG, 1X
     Route: 058
     Dates: start: 20201014, end: 20201014
  4. ALESION [Concomitant]
     Active Substance: EPINASTINE HYDROCHLORIDE
     Indication: DERMATITIS ATOPIC
     Dosage: 20 MG, QD
     Route: 048
  5. ALESION [Concomitant]
     Active Substance: EPINASTINE HYDROCHLORIDE
     Indication: ANAPHYLACTIC REACTION

REACTIONS (3)
  - Heart rate increased [Recovered/Resolved]
  - Anaphylactic reaction [Recovered/Resolved]
  - Cold sweat [Recovered/Resolved]

NARRATIVE: CASE EVENT DATE: 20201014
